FAERS Safety Report 24629371 (Version 3)
Quarter: 2025Q3

REPORT INFORMATION
  Report Type: Spontaneous
  Country: TR (occurrence: TR)
  Receive Date: 20241118
  Receipt Date: 20250802
  Transmission Date: 20251021
  Serious: Yes (Other)
  Sender: ALEXION PHARMACEUTICALS
  Company Number: TR-ASTRAZENECA-202411TUR008342TR

PATIENT
  Age: 57 Year
  Sex: Female

DRUGS (5)
  1. BYETTA [Suspect]
     Active Substance: EXENATIDE
     Indication: Type 2 diabetes mellitus
     Dosage: 10 MILLIGRAM, BID
  2. BYETTA [Suspect]
     Active Substance: EXENATIDE
  3. METOPROLOL TARTRATE [Concomitant]
     Active Substance: METOPROLOL TARTRATE
     Indication: Product used for unknown indication
  4. CHOLESTEROL [Concomitant]
     Active Substance: CHOLESTEROL
  5. Beloc [Concomitant]

REACTIONS (2)
  - Goitre [Recovered/Resolved]
  - Weight loss poor [Unknown]
